FAERS Safety Report 6148065-3 (Version None)
Quarter: 2009Q2

REPORT INFORMATION
  Report Type: 
  Country: None (occurrence: None)
  Receive Date: 20090408
  Receipt Date: 20090403
  Transmission Date: 20091009
  Serious: Yes (Hospitalization)
  Sender: FDA-Public Use
  Company Number: B0559817A

PATIENT
  Sex: Female
  Weight: 23 kg

DRUGS (7)
  1. RELENZA [Suspect]
     Indication: INFLUENZA
     Dosage: 10MG PER DAY
     Route: 055
     Dates: start: 20090212, end: 20090212
  2. ERYTHROCIN [Concomitant]
     Route: 065
  3. ASVERIN [Concomitant]
     Route: 048
  4. MUCOSOLVAN [Concomitant]
     Route: 048
  5. HOKUNALIN [Concomitant]
     Route: 065
  6. LAXOBERON [Concomitant]
     Route: 048
  7. CALONAL [Concomitant]
     Route: 065

REACTIONS (3)
  - ABNORMAL BEHAVIOUR [None]
  - AMNESIA [None]
  - DYSKINESIA [None]
